FAERS Safety Report 7211413-7 (Version None)
Quarter: 2011Q1

REPORT INFORMATION
  Report Type: 
  Country: None (occurrence: None)
  Receive Date: 20110105
  Receipt Date: 20101228
  Transmission Date: 20110831
  Serious: Yes (Hospitalization)
  Sender: FDA-Public Use
  Company Number: FR-ABBOTT-10P-056-0694322-00

PATIENT
  Age: 63 Year
  Sex: Male

DRUGS (15)
  1. ESOMEPRAZOLE [Concomitant]
     Indication: PRODUCT USED FOR UNKNOWN INDICATION
  2. PLAVIX [Concomitant]
     Indication: PRODUCT USED FOR UNKNOWN INDICATION
  3. DEPAKENE [Suspect]
     Indication: EPILEPSY
     Route: 048
     Dates: start: 20100901, end: 20101119
  4. EFFEXOR [Concomitant]
     Indication: PRODUCT USED FOR UNKNOWN INDICATION
  5. SPECIAFOLDINE [Concomitant]
     Indication: PRODUCT USED FOR UNKNOWN INDICATION
  6. PENTASA [Concomitant]
     Indication: PRODUCT USED FOR UNKNOWN INDICATION
  7. KEPPRA [Concomitant]
     Indication: PRODUCT USED FOR UNKNOWN INDICATION
  8. MALOCIDE [Concomitant]
     Indication: PRODUCT USED FOR UNKNOWN INDICATION
  9. LEXOMIL [Concomitant]
     Indication: PRODUCT USED FOR UNKNOWN INDICATION
  10. BISOPROLOL [Concomitant]
     Indication: PRODUCT USED FOR UNKNOWN INDICATION
  11. TAMSULOSIN HCL [Concomitant]
     Indication: PRODUCT USED FOR UNKNOWN INDICATION
  12. EFFEXOR [Concomitant]
  13. IMOVANE [Concomitant]
     Indication: PRODUCT USED FOR UNKNOWN INDICATION
  14. VALACICLOVIR [Suspect]
     Indication: PRODUCT USED FOR UNKNOWN INDICATION
     Dosage: 500 MG DAILY
     Route: 048
     Dates: start: 20100901, end: 20101118
  15. VAXIGRIP [Suspect]
     Indication: IMMUNISATION
     Route: 058
     Dates: start: 20101112, end: 20101112

REACTIONS (8)
  - CONFUSIONAL STATE [None]
  - AGITATION [None]
  - HEADACHE [None]
  - HYPERAMMONAEMIA [None]
  - VOMITING [None]
  - HYPONATRAEMIA [None]
  - DISORIENTATION [None]
  - METABOLIC ENCEPHALOPATHY [None]
